FAERS Safety Report 7419655-2 (Version None)
Quarter: 2011Q1

REPORT INFORMATION
  Report Type: 
  Country: None (occurrence: None)
  Receive Date: 20110302
  Receipt Date: 20101203
  Transmission Date: 20110831
  Serious: No
  Sender: FDA-Public Use
  Company Number: 023263

PATIENT
  Sex: Female
  Weight: 53.5 kg

DRUGS (8)
  1. CIMZIA [Suspect]
     Indication: CROHN'S DISEASE
     Dosage: (TWO SHOTS SUBCUTANEOUS)
     Route: 058
     Dates: start: 20101115
  2. PREVACID [Concomitant]
  3. MOBIC [Concomitant]
  4. PREDNISOLONE [Concomitant]
  5. MULTI-VITAMINS [Concomitant]
  6. ESTROVEN /02150801/ [Concomitant]
  7. SLEEP AID /01041702/ [Concomitant]
  8. ARAVA [Concomitant]

REACTIONS (1)
  - INJECTION SITE REACTION [None]
